FAERS Safety Report 12079183 (Version 1)
Quarter: 2016Q1

REPORT INFORMATION
  Report Type: Spontaneous
  Country: DE (occurrence: DE)
  Receive Date: 20160216
  Receipt Date: 20160216
  Transmission Date: 20160526
  Serious: Yes (Life-Threatening, Hospitalization)
  Sender: FDA-Public Use
  Company Number: DE-JNJFOC-20160212246

PATIENT
  Age: 7 Decade
  Sex: Male

DRUGS (1)
  1. REMICADE [Suspect]
     Active Substance: INFLIXIMAB
     Indication: POLYARTHRITIS
     Dosage: EVERY 6 TO 7 WEEKS
     Route: 042
     Dates: start: 200408, end: 20151013

REACTIONS (4)
  - Colon cancer [Not Recovered/Not Resolved]
  - Product use issue [Not Recovered/Not Resolved]
  - Lung adenocarcinoma metastatic [Not Recovered/Not Resolved]
  - Off label use [Not Recovered/Not Resolved]

NARRATIVE: CASE EVENT DATE: 200408
